FAERS Safety Report 5153151-0 (Version None)
Quarter: 2006Q4

REPORT INFORMATION
  Report Type: 
  Country: None (occurrence: None)
  Receive Date: 20061117
  Receipt Date: 20061114
  Transmission Date: 20070319
  Serious: Yes (Life-Threatening)
  Sender: FDA-Public Use
  Company Number: GB-GLAXOSMITHKLINE-B0447043A

PATIENT
  Age: 34 Year
  Sex: Male

DRUGS (2)
  1. PAROXETINE HCL [Suspect]
     Indication: DEPRESSION
     Route: 048
     Dates: start: 20060727
  2. MIRTAZAPINE [Concomitant]
     Route: 048
     Dates: start: 20060622, end: 20060626

REACTIONS (2)
  - FEELING ABNORMAL [None]
  - SUICIDAL IDEATION [None]
